FAERS Safety Report 8602072-7 (Version None)
Quarter: 2012Q3

REPORT INFORMATION
  Report Type: 
  Country: None (occurrence: None)
  Receive Date: 20120817
  Receipt Date: 20120808
  Transmission Date: 20120928
  Serious: Yes (Hospitalization)
  Sender: FDA-Public Use
  Company Number: NL-ABBOTT-12P-114-0898118-00

PATIENT
  Sex: Female

DRUGS (1)
  1. HUMIRA [Suspect]
     Indication: RHEUMATOID ARTHRITIS
     Route: 065
     Dates: end: 20111127

REACTIONS (4)
  - STREPTOCOCCAL INFECTION [None]
  - PURULENT DISCHARGE [None]
  - WOUND [None]
  - NECROTISING FASCIITIS STREPTOCOCCAL [None]
